FAERS Safety Report 11990310 (Version 1)
Quarter: 2016Q1

REPORT INFORMATION
  Report Type: Spontaneous
  Country: RO (occurrence: RO)
  Receive Date: 20160202
  Receipt Date: 20160202
  Transmission Date: 20160526
  Serious: Yes (Hospitalization)
  Sender: FDA-Public Use
  Company Number: ALCN2016RO000953

PATIENT
  Age: 66 Year
  Sex: Female

DRUGS (2)
  1. MOXIFLOXACIN HCL [Suspect]
     Active Substance: MOXIFLOXACIN
     Indication: ULCERATIVE KERATITIS
  2. MOXIFLOXACIN HCL [Suspect]
     Active Substance: MOXIFLOXACIN
     Indication: HYPOPYON
     Dosage: UNK
     Route: 047

REACTIONS (5)
  - Eye inflammation [Recovered/Resolved]
  - Conjunctival hyperaemia [Recovered/Resolved]
  - Scleral disorder [Recovered/Resolved]
  - Necrotising scleritis [Recovered/Resolved]
  - Scleral hyperaemia [Recovered/Resolved]
